FAERS Safety Report 5890214-6 (Version None)
Quarter: 2008Q3

REPORT INFORMATION
  Report Type: 
  Country: None (occurrence: None)
  Receive Date: 20080919
  Receipt Date: 20080908
  Transmission Date: 20090109
  Serious: Yes (Hospitalization, Other)
  Sender: FDA-Public Use
  Company Number: DE-PFIZER INC-2008076250

PATIENT
  Sex: Male
  Weight: 90 kg

DRUGS (3)
  1. LYRICA [Suspect]
     Indication: POLYNEUROPATHY
     Route: 048
     Dates: start: 20080801
  2. AMITRIPTYLINE HCL [Suspect]
     Route: 048
     Dates: start: 20080801
  3. ACETYL SALICYLIC ACID COMPOUND TAB [Concomitant]

REACTIONS (9)
  - ATAXIA [None]
  - ATRIOVENTRICULAR BLOCK [None]
  - BRADYCARDIA [None]
  - DIPLOPIA [None]
  - DIZZINESS [None]
  - HALLUCINATION, AUDITORY [None]
  - HALLUCINATION, VISUAL [None]
  - HEADACHE [None]
  - ORTHOSTATIC HYPOTENSION [None]
